FAERS Safety Report 6472384-4 (Version None)
Quarter: 2009Q4

REPORT INFORMATION
  Report Type: 
  Country: None (occurrence: None)
  Receive Date: 20091201
  Receipt Date: 20091118
  Transmission Date: 20100525
  Serious: Yes (Hospitalization)
  Sender: FDA-Public Use
  Company Number: DSA_42047_2009

PATIENT
  Age: 54 Year
  Sex: Female

DRUGS (4)
  1. DICLOFENAC (DICLOFENAC) [Suspect]
     Indication: PAIN IN EXTREMITY
     Dosage: (DF)
  2. TENOFOVIR (TENOFOVIR) 300 MG [Suspect]
     Indication: HIV INFECTION
     Dosage: (FREQUENCY NOT PROVIDED)
  3. LOPINAVIR AND RITONAVIR [Concomitant]
  4. LAMIVUDINE [Concomitant]

REACTIONS (9)
  - CONFUSIONAL STATE [None]
  - DISORIENTATION [None]
  - FANCONI SYNDROME [None]
  - METABOLIC ACIDOSIS [None]
  - NEPHROPATHY TOXIC [None]
  - RENAL FAILURE ACUTE [None]
  - RENAL TUBULAR NECROSIS [None]
  - SOMNOLENCE [None]
  - TUBULOINTERSTITIAL NEPHRITIS [None]
